FAERS Safety Report 14037493 (Version 1)
Quarter: 2017Q4

REPORT INFORMATION
  Report Type: Spontaneous
  Country: US (occurrence: US)
  Receive Date: 20171004
  Receipt Date: 20171004
  Transmission Date: 20180321
  Serious: No
  Sender: FDA-Public Use
  Company Number: US-UNICHEM LABORATORIES LIMITED-UCM201611-000250

PATIENT
  Age: 88 Year
  Sex: Female

DRUGS (3)
  1. CLONIDINE HCL [Suspect]
     Active Substance: CLONIDINE HYDROCHLORIDE
  2. CLONIDINE HCL [Suspect]
     Active Substance: CLONIDINE HYDROCHLORIDE
     Indication: BLOOD PRESSURE MEASUREMENT
  3. PREDNISONE. [Concomitant]
     Active Substance: PREDNISONE
     Indication: MYALGIA

REACTIONS (5)
  - Pain [Unknown]
  - Myalgia [Unknown]
  - Treatment noncompliance [Unknown]
  - Abdominal pain [Unknown]
  - Pollakiuria [Unknown]
